FAERS Safety Report 19233633 (Version 1)
Quarter: 2021Q2

REPORT INFORMATION
  Report Type: Spontaneous
  Country: US (occurrence: US)
  Receive Date: 20210507
  Receipt Date: 20210507
  Transmission Date: 20210717
  Serious: Yes (Hospitalization, Other)
  Sender: FDA-Public Use
  Company Number: US-NOVOPROD-808752

PATIENT
  Age: 71 Year
  Sex: Male

DRUGS (2)
  1. NOVOLIN N [Suspect]
     Active Substance: INSULIN HUMAN
     Dosage: UNK
     Route: 058
     Dates: start: 20210413
  2. NOVOLIN N [Suspect]
     Active Substance: INSULIN HUMAN
     Indication: PRODUCT USED FOR UNKNOWN INDICATION
     Dosage: SLIDING SCALE AND USUALLY INJECT 14 UNITS AT NIGHT; STOPPED IN 2019 AND RESTARTED ON 13?APR?2021
     Route: 058

REACTIONS (8)
  - Atrial fibrillation [Unknown]
  - Cardiac failure congestive [Unknown]
  - Gait disturbance [Not Recovered/Not Resolved]
  - Inability to afford medication [Unknown]
  - Plasma cell myeloma [Unknown]
  - Back pain [Unknown]
  - Blood glucose decreased [Unknown]
  - Ejection fraction decreased [Recovering/Resolving]

NARRATIVE: CASE EVENT DATE: 2019
